FAERS Safety Report 19715226 (Version 7)
Quarter: 2022Q3

REPORT INFORMATION
  Report Type: Spontaneous
  Country: JP (occurrence: JP)
  Receive Date: 20210818
  Receipt Date: 20220714
  Transmission Date: 20221026
  Serious: Yes (Hospitalization, Other)
  Sender: FDA-Public Use
  Company Number: JP-GLAXOSMITHKLINE-JP2021JPN171727

PATIENT

DRUGS (5)
  1. LAMICTAL [Suspect]
     Active Substance: LAMOTRIGINE
     Indication: Bipolar disorder
     Dosage: 25 MG, QD
     Route: 048
     Dates: start: 202103, end: 20210506
  2. LAMICTAL [Suspect]
     Active Substance: LAMOTRIGINE
     Indication: Depressive symptom
  3. VALPROATE SODIUM [Concomitant]
     Active Substance: VALPROATE SODIUM
     Dosage: 200 MG, BID
     Route: 048
  4. BELSOMRA [Concomitant]
     Active Substance: SUVOREXANT
     Dosage: 15 MG
     Route: 048
  5. LUNESTA [Concomitant]
     Active Substance: ESZOPICLONE
     Dosage: 1 MG
     Route: 048

REACTIONS (5)
  - Drug reaction with eosinophilia and systemic symptoms [Recovered/Resolved]
  - Erythema [Recovered/Resolved]
  - Lymphadenopathy [Recovered/Resolved]
  - Lip erosion [Recovered/Resolved]
  - Vulval disorder [Recovering/Resolving]

NARRATIVE: CASE EVENT DATE: 20210504
